FAERS Safety Report 21616176 (Version 1)
Quarter: 2022Q4

REPORT INFORMATION
  Report Type: Spontaneous
  Country: US (occurrence: None)
  Receive Date: 20221118
  Receipt Date: 20221118
  Transmission Date: 20230113
  Serious: Yes (Other)
  Sender: FDA-Public Use
  Company Number: None

PATIENT
  Age: 66 Year
  Sex: Male
  Weight: 74.25 kg

DRUGS (3)
  1. DEXTROAMPHET SACCHARAT, AMPHET ASPARTATE, DEXTROAMPHET SULFATE AND AMP [Suspect]
     Active Substance: AMPHETAMINE ASPARTATE\AMPHETAMINE SULFATE\DEXTROAMPHETAMINE SACCHARATE\DEXTROAMPHETAMINE SULFATE
     Indication: Attention deficit hyperactivity disorder
     Dosage: FREQUENCY : DAILY;?
     Route: 048
     Dates: start: 20220531, end: 20221103
  2. adderall xr 25mg TIKA version [Concomitant]
     Dates: start: 20100101, end: 20220530
  3. Adderall XR 25mg SUN pharma version [Concomitant]
     Dates: start: 20220531, end: 20221103

REACTIONS (7)
  - Product substitution issue [None]
  - Neuralgia [None]
  - Muscular weakness [None]
  - Feeling jittery [None]
  - Muscle twitching [None]
  - Anxiety [None]
  - Agitation [None]

NARRATIVE: CASE EVENT DATE: 20221104
